FAERS Safety Report 7134743-6 (Version None)
Quarter: 2010Q4

REPORT INFORMATION
  Report Type: 
  Country: None (occurrence: None)
  Receive Date: 20101203
  Receipt Date: 20101129
  Transmission Date: 20110411
  Serious: No
  Sender: FDA-Public Use
  Company Number: DE-EISAI INC.-E2090-00923-SPO-DE

PATIENT
  Age: 70 Year
  Sex: Male
  Weight: 70 kg

DRUGS (10)
  1. ZONEGRAN [Suspect]
     Indication: EPILEPSY
     Route: 048
     Dates: end: 20091103
  2. ZONEGRAN [Suspect]
     Route: 048
     Dates: start: 20091104, end: 20091201
  3. SIMVASTATIN [Concomitant]
     Route: 048
  4. TOREM [Concomitant]
     Route: 048
  5. ENALAPRIL MALEATE [Concomitant]
     Route: 048
  6. BENZBROMARON [Concomitant]
     Dosage: 1 TABLET
     Route: 048
  7. CARVEDILOL [Concomitant]
     Route: 048
  8. SPIRONOLACTONE [Concomitant]
     Route: 048
  9. XIPAMID [Concomitant]
     Route: 048
  10. FOLITHOM [Concomitant]
     Route: 048

REACTIONS (1)
  - BLOOD CREATININE INCREASED [None]
